FAERS Safety Report 18979425 (Version 2)
Quarter: 2021Q2

REPORT INFORMATION
  Report Type: Report from Study
  Country: None (occurrence: US)
  Receive Date: 20210308
  Receipt Date: 20210528
  Transmission Date: 20210717
  Serious: Yes (Other)
  Sender: FDA-Public Use
  Company Number: US-ABBVIE-21K-163-3803526-00

PATIENT
  Sex: Female

DRUGS (1)
  1. HUMIRA [Suspect]
     Active Substance: ADALIMUMAB
     Indication: PSORIATIC ARTHROPATHY
     Dosage: CF
     Route: 058

REACTIONS (15)
  - Large intestine polyp [Unknown]
  - Pancreatitis acute [Recovered/Resolved]
  - Fall [Unknown]
  - Ankle fracture [Unknown]
  - Emphysema [Unknown]
  - Tooth disorder [Unknown]
  - Diabetes mellitus [Unknown]
  - Cholelithiasis [Unknown]
  - Cholecystitis infective [Unknown]
  - Foot fracture [Not Recovered/Not Resolved]
  - Pulmonary mass [Unknown]
  - Chronic obstructive pulmonary disease [Unknown]
  - Gastrointestinal pain [Unknown]
  - Precancerous lesion of digestive tract [Unknown]
  - Intestinal mucosal tear [Unknown]

NARRATIVE: CASE EVENT DATE: 2020
